FAERS Safety Report 8803139 (Version 2)
Quarter: 2013Q4

REPORT INFORMATION
  Report Type: Spontaneous
  Country: JP (occurrence: JP)
  Receive Date: 20120924
  Receipt Date: 20131227
  Transmission Date: 20140711
  Serious: Yes (Hospitalization)
  Sender: FDA-Public Use
  Company Number: JP-JNJFOC-20120906855

PATIENT
  Age: 44 Year
  Sex: Male
  Weight: 100 kg

DRUGS (2)
  1. REMICADE [Suspect]
     Indication: PSORIATIC ARTHROPATHY
     Route: 042
     Dates: start: 20101022
  2. REMICADE [Suspect]
     Indication: PSORIATIC ARTHROPATHY
     Dosage: 15TH INFUSION
     Route: 042
     Dates: start: 20120621

REACTIONS (3)
  - Erysipelas [Recovered/Resolved]
  - Herpes zoster [Recovered/Resolved]
  - Herpes zoster [Recovering/Resolving]
